FAERS Safety Report 16771513 (Version 2)
Quarter: 2019Q3

REPORT INFORMATION
  Report Type: Spontaneous
  Country: AT (occurrence: AT)
  Receive Date: 20190904
  Receipt Date: 20190918
  Transmission Date: 20191005
  Serious: Yes (Other)
  Sender: FDA-Public Use
  Company Number: AT-BAYER-2019-157681

PATIENT
  Age: 80 Year
  Sex: Female

DRUGS (10)
  1. PANTOPRAZOL [PANTOPRAZOLE] [Concomitant]
     Active Substance: PANTOPRAZOLE
  2. NEBIVOLOL. [Concomitant]
     Active Substance: NEBIVOLOL
  3. VALACICLOVIR [Concomitant]
     Active Substance: VALACYCLOVIR HYDROCHLORIDE
  4. ALLOPURINOL. [Concomitant]
     Active Substance: ALLOPURINOL
  5. EDOXABAN [Concomitant]
     Active Substance: EDOXABAN TOSYLATE
  6. COPANLISIB. [Suspect]
     Active Substance: COPANLISIB
     Indication: B-CELL LYMPHOMA
     Dosage: 60 MG, Q2WK
     Dates: start: 20190402, end: 20190806
  7. FUROSEMID [FUROSEMIDE] [Concomitant]
     Active Substance: FUROSEMIDE
  8. SPIRONOLACTONE. [Concomitant]
     Active Substance: SPIRONOLACTONE
  9. PREGABALINE [Concomitant]
     Active Substance: PREGABALIN
  10. LIDAPRIM [SULFAMETROLE SODIUM;TRIMETHOPRIM] [Concomitant]

REACTIONS (2)
  - Fall [None]
  - Traumatic fracture [None]

NARRATIVE: CASE EVENT DATE: 20190825
